FAERS Safety Report 4978027-0 (Version None)
Quarter: 2006Q2

REPORT INFORMATION
  Report Type: 
  Country: None (occurrence: None)
  Receive Date: 20060420
  Receipt Date: 20050930
  Transmission Date: 20061013
  Serious: Yes (Death, Other)
  Sender: FDA-Public Use
  Company Number: US-MERCK-0510USA01543

PATIENT
  Age: 75 Year
  Sex: Female

DRUGS (3)
  1. VIOXX [Suspect]
     Indication: OSTEOARTHRITIS
     Route: 048
     Dates: start: 20010101, end: 20030101
  2. TYLENOL (CAPLET) [Concomitant]
     Route: 065
  3. ALEVE [Concomitant]
     Route: 065

REACTIONS (8)
  - ARTHROPATHY [None]
  - ATRIAL FIBRILLATION [None]
  - CEREBROVASCULAR ACCIDENT [None]
  - JOINT INJURY [None]
  - LIVER DISORDER [None]
  - MYOCARDIAL INFARCTION [None]
  - PULMONARY EMBOLISM [None]
  - RENAL DISORDER [None]
